FAERS Safety Report 11981819 (Version 1)
Quarter: 2016Q1

REPORT INFORMATION
  Report Type: Spontaneous
  Country: US (occurrence: US)
  Receive Date: 20160201
  Receipt Date: 20160201
  Transmission Date: 20160526
  Serious: No
  Sender: FDA-Public Use
  Company Number: US-ASTRAZENECA-2016SE06205

PATIENT
  Sex: Female

DRUGS (1)
  1. TUDORZA PRESSAIR [Suspect]
     Active Substance: ACLIDINIUM BROMIDE
     Dosage: 400 MCG, 60 METERED DOSE INHALER UNKNOWN
     Route: 055

REACTIONS (3)
  - Drug dose omission [Unknown]
  - Anxiety [Unknown]
  - Product quality issue [Unknown]
